FAERS Safety Report 13726551 (Version 3)
Quarter: 2017Q4

REPORT INFORMATION
  Report Type: Report from Study
  Country: US (occurrence: US)
  Receive Date: 20170706
  Receipt Date: 20171011
  Transmission Date: 20180320
  Serious: Yes (Other)
  Sender: FDA-Public Use
  Company Number: US-GILEAD-2017-0275471

PATIENT
  Age: 80 Year
  Sex: Female

DRUGS (3)
  1. IDELALISIB [Suspect]
     Active Substance: IDELALISIB
     Dosage: 150 MG, BID
     Route: 048
     Dates: start: 20150810
  2. IDELALISIB [Suspect]
     Active Substance: IDELALISIB
     Dosage: 150 UNK, UNK
     Route: 048
     Dates: start: 20150810
  3. IDELALISIB [Suspect]
     Active Substance: IDELALISIB
     Indication: CHRONIC LYMPHOCYTIC LEUKAEMIA
     Dosage: 150 MG, BID
     Route: 048
     Dates: start: 20150810

REACTIONS (14)
  - Herpes zoster [Not Recovered/Not Resolved]
  - Mouth injury [Unknown]
  - Arthralgia [Unknown]
  - Fall [Unknown]
  - Myalgia [Unknown]
  - Face injury [Unknown]
  - Muscular weakness [Unknown]
  - Fatigue [Unknown]
  - Pyrexia [Unknown]
  - Pain [Unknown]
  - Balance disorder [Unknown]
  - Skin cancer [Unknown]
  - Head injury [Unknown]
  - Discomfort [Unknown]
